FAERS Safety Report 16595799 (Version 3)
Quarter: 2019Q3

REPORT INFORMATION
  Report Type: Spontaneous
  Country: JP (occurrence: JP)
  Receive Date: 20190719
  Receipt Date: 20190816
  Transmission Date: 20191004
  Serious: Yes (Other)
  Sender: FDA-Public Use
  Company Number: JP-ROCHE-2357243

PATIENT
  Age: 55 Year
  Sex: Female

DRUGS (5)
  1. HERCEPTIN [Suspect]
     Active Substance: TRASTUZUMAB
     Indication: INVASIVE DUCTAL BREAST CARCINOMA
     Dosage: DOSAGE IS UNCERTAIN.
     Route: 041
     Dates: end: 2019
  2. TAMOXIFEN [Suspect]
     Active Substance: TAMOXIFEN
     Indication: INVASIVE DUCTAL BREAST CARCINOMA
     Dosage: DOSAGE IS UNCERTAIN.
     Route: 065
     Dates: start: 2018, end: 2019
  3. LETROZOLE. [Concomitant]
     Active Substance: LETROZOLE
     Indication: INVASIVE DUCTAL BREAST CARCINOMA
     Dosage: DOSAGE IS UNCERTAIN.
     Route: 048
     Dates: start: 2018, end: 2018
  4. PERJETA [Suspect]
     Active Substance: PERTUZUMAB
     Indication: INVASIVE DUCTAL BREAST CARCINOMA
     Dosage: STRENGTH: 420MG/14ML
     Route: 041
     Dates: start: 2018, end: 2019
  5. EXEMESTANE. [Concomitant]
     Active Substance: EXEMESTANE
     Indication: INVASIVE DUCTAL BREAST CARCINOMA
     Dosage: DOSAGE IS UNCERTAIN.
     Route: 048
     Dates: end: 2018

REACTIONS (1)
  - Hepatic steatosis [Not Recovered/Not Resolved]

NARRATIVE: CASE EVENT DATE: 201810
